FAERS Safety Report 5878829-2 (Version None)
Quarter: 2008Q3

REPORT INFORMATION
  Report Type: 
  Country: None (occurrence: None)
  Receive Date: 20080910
  Receipt Date: 20080827
  Transmission Date: 20090109
  Serious: Yes (Death, Other)
  Sender: FDA-Public Use
  Company Number: MC200800400

PATIENT

DRUGS (5)
  1. ANGIOMAX [Suspect]
     Indication: PERCUTANEOUS CORONARY INTERVENTION
     Dosage: 75 MG/KG, BOLUS, INTRAVENOUS; 1.75 MG/KG, HR, INTRAVENEOUS
     Route: 042
  2. ASPIRIN [Concomitant]
  3. CLOPIDOGREL [Concomitant]
  4. TICLPIDINE /00543202/ (TICLOPIDINE HDYROCHLORIDE) [Concomitant]
  5. ABCIXIMAB (ABCIXIMAB) [Concomitant]

REACTIONS (6)
  - CORONARY ARTERY OCCLUSION [None]
  - GASTROINTESTINAL HAEMORRHAGE [None]
  - HAEMATOMA [None]
  - HAEMORRHAGE [None]
  - MYOCARDIAL INFARCTION [None]
  - RENAL FAILURE ACUTE [None]
